FAERS Safety Report 4359683-7 (Version None)
Quarter: 2004Q2

REPORT INFORMATION
  Report Type: 
  Country: None (occurrence: None)
  Receive Date: 20040513
  Receipt Date: 20040430
  Transmission Date: 20050107
  Serious: Yes (Hospitalization)
  Sender: FDA-Public Use
  Company Number: 2004030387

PATIENT
  Age: 24 Year
  Sex: Male

DRUGS (1)
  1. ATARAX [Suspect]
     Indication: SUICIDE ATTEMPT
     Dosage: (ONCE), ORAL
     Route: 048
     Dates: start: 20040429, end: 20040429

REACTIONS (5)
  - DEPRESSED LEVEL OF CONSCIOUSNESS [None]
  - INTENTIONAL OVERDOSE [None]
  - PALLOR [None]
  - SUICIDE ATTEMPT [None]
  - VOMITING [None]
